FAERS Safety Report 20152325 (Version 1)
Quarter: 2021Q4

REPORT INFORMATION
  Report Type: Other
  Country: CN (occurrence: None)
  Receive Date: 20211206
  Receipt Date: 20211206
  Transmission Date: 20220303
  Serious: Yes (Other)
  Sender: FDA-Public Use
  Company Number: CN-ROCHE-2966184

PATIENT

DRUGS (2)
  1. CAPECITABINE [Suspect]
     Active Substance: CAPECITABINE
     Indication: Gastric cancer
     Dosage: 1000MG/M2 DIVIDED INTO 2 DOSE
     Route: 048
  2. OXALIPLATIN [Suspect]
     Active Substance: OXALIPLATIN
     Indication: Gastric cancer
     Dosage: DAY1
     Route: 041

REACTIONS (7)
  - Myelosuppression [Unknown]
  - Anaemia [Unknown]
  - Nausea [Unknown]
  - Vomiting [Unknown]
  - Neurotoxicity [Unknown]
  - Liver injury [Unknown]
  - Renal injury [Unknown]
